FAERS Safety Report 17204404 (Version 3)
Quarter: 2020Q1

REPORT INFORMATION
  Report Type: Spontaneous
  Country: US (occurrence: US)
  Receive Date: 20191226
  Receipt Date: 20200203
  Transmission Date: 20200409
  Serious: Yes (Other)
  Sender: FDA-Public Use
  Company Number: US-PFIZER INC-2019554586

PATIENT
  Age: 72 Year
  Sex: Female

DRUGS (1)
  1. ZOLOFT [Suspect]
     Active Substance: SERTRALINE HYDROCHLORIDE
     Dosage: UNK, AS NEEDED (ONE TO TWO TABLETS PER DAY)

REACTIONS (6)
  - Tinnitus [Unknown]
  - Product use issue [Unknown]
  - Drug dependence [Unknown]
  - Intentional product misuse [Unknown]
  - Hypoaesthesia oral [Unknown]
  - Off label use [Unknown]
